FAERS Safety Report 8826502 (Version 1)
Quarter: 2012Q4

REPORT INFORMATION
  Report Type: 
  Country: TN (occurrence: TN)
  Receive Date: 20121005
  Receipt Date: 20121005
  Transmission Date: 20130627
  Serious: Yes (Other)
  Sender: FDA-Public Use
  Company Number: TN-WATSON-2012-16795

PATIENT
  Age: 54 Year
  Sex: Female

DRUGS (2)
  1. DOXYCYCLINE [Suspect]
     Indication: CUTANEOUS LEISHMANIASIS
     Dosage: 200 mg, daily x 6 weeks
     Route: 065
  2. AMOXICILLIN [Suspect]
     Indication: CUTANEOUS LEISHMANIASIS
     Dosage: 4 g, daily x 10 days
     Route: 048

REACTIONS (1)
  - Drug ineffective [Not Recovered/Not Resolved]
